FAERS Safety Report 11361175 (Version 1)
Quarter: 2015Q3

REPORT INFORMATION
  Report Type: Report from Study
  Country: US (occurrence: US)
  Receive Date: 20150810
  Receipt Date: 20150810
  Transmission Date: 20151125
  Serious: Yes (Life-Threatening)
  Sender: FDA-Public Use
  Company Number: US-EISAI MEDICAL RESEARCH-E2007-01463-CLI-US

PATIENT
  Age: 35 Year
  Sex: Female
  Weight: 71 kg

DRUGS (20)
  1. NUVIGIL [Concomitant]
     Active Substance: ARMODAFINIL
  2. EMERGEN-C [Concomitant]
     Active Substance: VITAMINS
  3. CYMBALTA [Concomitant]
     Active Substance: DULOXETINE HYDROCHLORIDE
  4. FOLIC ACID. [Concomitant]
     Active Substance: FOLIC ACID
  5. CALCIUM [Concomitant]
     Active Substance: CALCIUM
  6. COLON HEALTH [Concomitant]
  7. FEXOFENADINE [Concomitant]
     Active Substance: FEXOFENADINE\FEXOFENADINE HYDROCHLORIDE
  8. PERAMPANEL [Suspect]
     Active Substance: PERAMPANEL
     Indication: GENERALISED TONIC-CLONIC SEIZURE
     Dosage: CORE STUDY PERAMPANEL
     Route: 048
     Dates: start: 20131001, end: 20131128
  9. CLONAZEPAM. [Concomitant]
     Active Substance: CLONAZEPAM
  10. NEXIUM [Concomitant]
     Active Substance: ESOMEPRAZOLE MAGNESIUM
  11. LEVOTHYROXINE. [Concomitant]
     Active Substance: LEVOTHYROXINE
  12. MVI [Concomitant]
     Active Substance: VITAMINS
  13. ZONEGRAN [Concomitant]
     Active Substance: ZONISAMIDE
  14. CYPROHEPATADINE [Concomitant]
     Active Substance: CYPROHEPTADINE HYDROCHLORIDE
  15. LAMICTAL [Concomitant]
     Active Substance: LAMOTRIGINE
  16. VITAMIN B12 [Concomitant]
     Active Substance: CYANOCOBALAMIN
  17. VITAMIN D2 [Concomitant]
     Active Substance: ERGOCALCIFEROL
  18. IBUPROFEN. [Concomitant]
     Active Substance: IBUPROFEN
  19. NARATRIPTAN [Concomitant]
     Active Substance: NARATRIPTAN HYDROCHLORIDE
  20. FLUTICASONE-SALMETEROL [Concomitant]

REACTIONS (1)
  - Suicide attempt [Recovered/Resolved]

NARRATIVE: CASE EVENT DATE: 20131129
